FAERS Safety Report 24899979 (Version 2)
Quarter: 2025Q1

REPORT INFORMATION
  Report Type: Report from Study
  Country: US (occurrence: US)
  Receive Date: 20250129
  Receipt Date: 20250207
  Transmission Date: 20250409
  Serious: No
  Sender: SANDOZ
  Company Number: US-SANDOZ-SDZ2025US005184

PATIENT
  Age: 16 Year
  Sex: Male

DRUGS (2)
  1. OMNITROPE [Suspect]
     Active Substance: SOMATROPIN
     Indication: Short stature
     Dosage: 2.4 MG, QD
     Route: 058
     Dates: start: 20250116, end: 20250129
  2. OMNITROPE [Suspect]
     Active Substance: SOMATROPIN
     Indication: Short stature
     Dosage: 2.4 MG, QD
     Route: 058
     Dates: start: 20250116, end: 20250129

REACTIONS (3)
  - Incorrect dose administered by device [Unknown]
  - Device physical property issue [Unknown]
  - Needle issue [Unknown]

NARRATIVE: CASE EVENT DATE: 20250101
